FAERS Safety Report 5249447-4 (Version None)
Quarter: 2007Q1

REPORT INFORMATION
  Report Type: 
  Country: None (occurrence: None)
  Receive Date: 20070228
  Receipt Date: 20061103
  Transmission Date: 20070707
  Serious: No
  Sender: FDA-Public Use
  Company Number: US-GLAXOSMITHKLINE-A0626184A

PATIENT
  Age: 21 Year
  Sex: Female

DRUGS (3)
  1. VALTREX [Suspect]
     Dosage: 500MG VARIABLE DOSE
     Route: 048
     Dates: start: 20051212, end: 20060901
  2. ZOVIRAX [Suspect]
     Indication: HERPES SIMPLEX
     Dosage: 15G THREE TIMES PER DAY
     Route: 061
     Dates: start: 20051212, end: 20061001
  3. YASMIN [Concomitant]

REACTIONS (4)
  - ABDOMINAL PAIN UPPER [None]
  - DIARRHOEA [None]
  - DRUG INEFFECTIVE [None]
  - PHARMACEUTICAL PRODUCT COMPLAINT [None]
